FAERS Safety Report 8728058 (Version 3)
Quarter: 2020Q4

REPORT INFORMATION
  Report Type: Spontaneous
  Country: BR (occurrence: BR)
  Receive Date: 20120817
  Receipt Date: 20201020
  Transmission Date: 20210114
  Serious: Yes (Death, Hospitalization, Other)
  Sender: FDA-Public Use
  Company Number: BR-AMGEN-BRASP2012051454

PATIENT
  Age: 70 Year
  Sex: Female
  Weight: 72 kg

DRUGS (6)
  1. VASLIP                             /01341302/ [Concomitant]
     Dosage: UNK
  2. FOLIC ACID. [Concomitant]
     Active Substance: FOLIC ACID
     Dosage: UNK
  3. ENBREL [Suspect]
     Active Substance: ETANERCEPT
     Indication: RHEUMATOID ARTHRITIS
     Dosage: 50 MG, ONCE WEEKLY
     Route: 058
     Dates: start: 201202, end: 201208
  4. PREDNISONE. [Concomitant]
     Active Substance: PREDNISONE
     Dosage: UNK
  5. PROPRANOLOL [Concomitant]
     Active Substance: PROPRANOLOL HYDROCHLORIDE
     Dosage: UNK
  6. VASOPRIL                           /00574902/ [Concomitant]
     Dosage: UNK

REACTIONS (6)
  - Cough [Unknown]
  - Influenza [Unknown]
  - Multiple organ dysfunction syndrome [Fatal]
  - Anaemia [Unknown]
  - Secretion discharge [Unknown]
  - Infection parasitic [Unknown]

NARRATIVE: CASE EVENT DATE: 2012
